FAERS Safety Report 23326801 (Version 1)
Quarter: 2023Q4

REPORT INFORMATION
  Report Type: Report from Study
  Country: BR (occurrence: None)
  Receive Date: 20231221
  Receipt Date: 20231221
  Transmission Date: 20240109
  Serious: Yes (Life-Threatening, Hospitalization, Other)
  Sender: FDA-Public Use
  Company Number: 2023A288810

PATIENT
  Sex: Female

DRUGS (1)
  1. FASENRA [Suspect]
     Active Substance: BENRALIZUMAB
     Dosage: UNKNOWN
     Route: 058

REACTIONS (2)
  - Asthma [Recovering/Resolving]
  - Influenza [Unknown]

NARRATIVE: CASE EVENT DATE: 20231211
